FAERS Safety Report 6452439-0 (Version None)
Quarter: 2009Q4

REPORT INFORMATION
  Report Type: 
  Country: None (occurrence: None)
  Receive Date: 20091123
  Receipt Date: 20091109
  Transmission Date: 20100525
  Serious: Yes (Death)
  Sender: FDA-Public Use
  Company Number: CH-GENENTECH-294246

PATIENT
  Sex: Male

DRUGS (4)
  1. AVASTIN [Suspect]
     Indication: GLIOBLASTOMA MULTIFORME
     Dosage: UNK
     Route: 065
     Dates: start: 20080205
  2. TEMOZOLOMIDE [Concomitant]
     Indication: DRUG USE FOR UNKNOWN INDICATION
  3. CETUXIMAB [Concomitant]
     Indication: DRUG USE FOR UNKNOWN INDICATION
  4. IRINOTECAN HCL [Concomitant]
     Indication: DRUG USE FOR UNKNOWN INDICATION

REACTIONS (2)
  - BONE MARROW FAILURE [None]
  - NEOPLASM MALIGNANT [None]
